FAERS Safety Report 9442466 (Version 1)
Quarter: 2013Q3

REPORT INFORMATION
  Report Type: Spontaneous
  Country: FR (occurrence: FR)
  Receive Date: 20130806
  Receipt Date: 20130806
  Transmission Date: 20140515
  Serious: Yes (Life-Threatening, Hospitalization)
  Sender: FDA-Public Use
  Company Number: FR-ASTRAZENECA-2013SE60393

PATIENT
  Age: 20486 Day
  Sex: Female

DRUGS (5)
  1. DIPRIVAN [Suspect]
     Indication: ANAESTHESIA
     Route: 042
     Dates: start: 20120402
  2. OMNIPAQUE [Concomitant]
     Route: 042
     Dates: start: 20120402, end: 20120402
  3. SUFENTA [Concomitant]
     Indication: ANAESTHESIA
     Route: 042
     Dates: start: 20120402
  4. NIMBEX [Concomitant]
     Indication: ANAESTHESIA
     Route: 042
     Dates: start: 20120402
  5. IOMERON [Concomitant]
     Dates: start: 2009

REACTIONS (2)
  - Anaphylactic shock [Recovered/Resolved]
  - Bradycardia [Unknown]
